FAERS Safety Report 7593902-9 (Version None)
Quarter: 2011Q3

REPORT INFORMATION
  Report Type: 
  Country: None (occurrence: None)
  Receive Date: 20110706
  Receipt Date: 20110627
  Transmission Date: 20111222
  Serious: Yes (Other)
  Sender: FDA-Public Use
  Company Number: PHHY2011US58178

PATIENT
  Sex: Female

DRUGS (1)
  1. TASIGNA [Suspect]
     Indication: LEUKAEMIA
     Dosage: 400 MG, BID
     Route: 048
     Dates: start: 20090101

REACTIONS (1)
  - GENE MUTATION [None]
